FAERS Safety Report 5514494-1 (Version None)
Quarter: 2007Q4

REPORT INFORMATION
  Report Type: 
  Country: None (occurrence: None)
  Receive Date: 20071113
  Receipt Date: 20071112
  Transmission Date: 20080405
  Serious: Yes (Other)
  Sender: FDA-Public Use
  Company Number: A0682011A

PATIENT
  Age: 71 Year
  Sex: Female

DRUGS (2)
  1. UREA PEROXIDE [Suspect]
     Route: 001
  2. NITROGLYCERIN [Concomitant]

REACTIONS (13)
  - CERUMEN IMPACTION [None]
  - DEAFNESS NEUROSENSORY [None]
  - EAR DISORDER [None]
  - EAR INFECTION [None]
  - EAR PAIN [None]
  - EXCORIATION [None]
  - HYPERSENSITIVITY [None]
  - IRRITABILITY [None]
  - OTITIS EXTERNA [None]
  - PALLOR [None]
  - PRURITUS [None]
  - RASH [None]
  - SKIN EXFOLIATION [None]
